FAERS Safety Report 8313112-7 (Version None)
Quarter: 2012Q2

REPORT INFORMATION
  Report Type: 
  Country: None (occurrence: None)
  Receive Date: 20120426
  Receipt Date: 20120420
  Transmission Date: 20120825
  Serious: Yes (Life-Threatening, Hospitalization)
  Sender: FDA-Public Use
  Company Number: FR-PFIZER INC-2012098307

PATIENT
  Age: 76 Year
  Sex: Male
  Weight: 75 kg

DRUGS (4)
  1. ASPIRIN [Concomitant]
  2. FUROSEMIDE [Suspect]
     Dosage: UNK
     Route: 048
     Dates: start: 20120118, end: 20120314
  3. SUTENT [Suspect]
     Indication: NEUROENDOCRINE TUMOUR
     Dosage: 37.5 MG, 1X/DAY
     Route: 048
     Dates: start: 20120203, end: 20120314
  4. INDAPAMIDE/PERINDOPRIL [Suspect]
     Dosage: UNK
     Route: 048
     Dates: start: 20110131, end: 20120314

REACTIONS (7)
  - THROMBOSIS [None]
  - HAEMORRHOIDS [None]
  - SYSTEMIC INFLAMMATORY RESPONSE SYNDROME [None]
  - RENAL FAILURE ACUTE [None]
  - RECTAL HAEMORRHAGE [None]
  - THROMBOCYTOPENIA [None]
  - GENERAL PHYSICAL HEALTH DETERIORATION [None]
